FAERS Safety Report 7165473-2 (Version None)
Quarter: 2010Q4

REPORT INFORMATION
  Report Type: 
  Country: None (occurrence: None)
  Receive Date: 20101215
  Receipt Date: 20091228
  Transmission Date: 20110411
  Serious: No
  Sender: FDA-Public Use
  Company Number: US-AMGEN-KDL382681

PATIENT

DRUGS (3)
  1. ENBREL [Suspect]
     Indication: RHEUMATOID ARTHRITIS
     Dosage: 50 MG, QWK
     Route: 058
  2. METHOTREXATE [Concomitant]
  3. PREDNISONE [Concomitant]
     Dosage: 1 MG, UNK

REACTIONS (3)
  - HEADACHE [None]
  - LOWER RESPIRATORY TRACT INFECTION [None]
  - SPUTUM DISCOLOURED [None]
